FAERS Safety Report 7893876-7 (Version None)
Quarter: 2011Q4

REPORT INFORMATION
  Report Type: 
  Country: None (occurrence: None)
  Receive Date: 20111104
  Receipt Date: 20111101
  Transmission Date: 20120403
  Serious: Yes (Hospitalization)
  Sender: FDA-Public Use
  Company Number: PHEH2011US08381

PATIENT
  Sex: Female

DRUGS (4)
  1. GILENYA [Suspect]
     Indication: MULTIPLE SCLEROSIS
     Dosage: 0.5 MG, DAILY
     Route: 048
     Dates: start: 20101113
  2. LEXAPRO [Concomitant]
     Dosage: UNK UKN, UNK
  3. TOPAMAX [Concomitant]
     Dosage: UNK UKN, UNK
  4. ADDERALL 5 [Concomitant]
     Dosage: UNK UKN, UNK

REACTIONS (4)
  - BRONCHITIS [None]
  - SINUSITIS [None]
  - DEHYDRATION [None]
  - VOMITING [None]
